FAERS Safety Report 9363795 (Version 3)
Quarter: 2014Q1

REPORT INFORMATION
  Report Type: Report from Study
  Country: CA (occurrence: CA)
  Receive Date: 20130624
  Receipt Date: 20140114
  Transmission Date: 20141002
  Serious: Yes (Death, Life-Threatening, Hospitalization)
  Sender: FDA-Public Use
  Company Number: CA-ROCHE-1238779

PATIENT
  Age: 67 Year
  Sex: Male
  Weight: 91.5 kg

DRUGS (21)
  1. RITUXIMAB [Suspect]
     Indication: DIFFUSE LARGE B-CELL LYMPHOMA
     Dosage: VOLUME OF LAST RITUXIMAB TAKEN: 250ML AT CONCENTRATION OF 727.5 MG /ML?DATE OF MOST RECENT DOSE PRIO
     Route: 042
     Dates: start: 20110824, end: 20120126
  2. CYCLOPHOSPHAMIDE [Suspect]
     Indication: DIFFUSE LARGE B-CELL LYMPHOMA
     Dosage: LAST DOSE OF 1455 MG TAKEN : 16/DEC/2011.
     Route: 042
     Dates: start: 20110824, end: 20111216
  3. DOXORUBICIN [Suspect]
     Indication: DIFFUSE LARGE B-CELL LYMPHOMA
     Dosage: MOST RECENT DOSE OF 97 MG TAKEN : 16/DEC/2011.
     Route: 042
     Dates: start: 20110824, end: 20111216
  4. VINCRISTINE [Suspect]
     Indication: DIFFUSE LARGE B-CELL LYMPHOMA
     Dosage: DOSE OF LAST VINCISTINE TAKEN: 2MG ON 16/DEC/2011
     Route: 042
     Dates: start: 20110824, end: 20111216
  5. PREDNISONE [Suspect]
     Indication: DIFFUSE LARGE B-CELL LYMPHOMA
     Dosage: MOST RECENT DOSE OF 100 MG PRIOR TO SAE : 20/DEC/2011.
     Route: 048
     Dates: start: 20110824, end: 20111220
  6. DOCUSATE SODIUM [Concomitant]
     Indication: CONSTIPATION
     Route: 065
  7. SENNA [Concomitant]
     Indication: CONSTIPATION
     Route: 065
  8. FLOMAX (CANADA) [Concomitant]
     Indication: BENIGN PROSTATIC HYPERPLASIA
     Route: 065
  9. CANDESARTAN [Concomitant]
     Indication: HYPERTENSION
     Route: 065
  10. ACETYLSALICYLIC ACID [Concomitant]
     Route: 065
  11. LIPITOR [Concomitant]
     Indication: BLOOD CHOLESTEROL INCREASED
     Route: 065
  12. AMLODIPINE [Concomitant]
     Indication: HYPERTENSION
     Route: 065
  13. BIMATOPROST [Concomitant]
     Indication: GLAUCOMA
     Dosage: DOSE : 1 DROP TO EYE
     Route: 065
  14. IMOVANE [Concomitant]
     Indication: INSOMNIA
     Route: 065
  15. NPH INSULIN [Concomitant]
     Indication: DIABETES MELLITUS
     Dosage: DOSE : 15 UNITS
     Route: 058
     Dates: start: 20110916
  16. MAXERAN [Concomitant]
     Indication: NAUSEA
     Route: 054
     Dates: start: 20110923
  17. INSULIN HUMAN REGULAR [Concomitant]
     Indication: DIABETES MELLITUS
     Route: 065
     Dates: start: 20110923
  18. GLICLAZIDE [Concomitant]
     Indication: DIABETES MELLITUS
     Route: 065
     Dates: start: 201111
  19. REPAGLINIDE [Concomitant]
     Indication: DIABETES MELLITUS
     Route: 048
     Dates: start: 201111
  20. METFORMIN [Concomitant]
     Indication: DIABETES MELLITUS
     Route: 065
  21. METFORMIN [Concomitant]
     Route: 065

REACTIONS (2)
  - Acute myeloid leukaemia [Fatal]
  - Bronchopulmonary aspergillosis [Not Recovered/Not Resolved]
